FAERS Safety Report 5235669-5 (Version None)
Quarter: 2007Q1

REPORT INFORMATION
  Report Type: 
  Country: None (occurrence: None)
  Receive Date: 20070212
  Receipt Date: 20070202
  Transmission Date: 20070707
  Serious: Yes (Hospitalization)
  Sender: FDA-Public Use
  Company Number: 2007JP000324

PATIENT
  Age: 37 Year
  Sex: Male
  Weight: 71 kg

DRUGS (2)
  1. CEFAZOLIN [Suspect]
     Indication: CHRONIC SINUSITIS
     Dosage: 1G TWICE PER DAY
     Route: 042
     Dates: start: 20061208, end: 20061211
  2. FLOMOX [Suspect]
     Indication: CHRONIC SINUSITIS
     Dosage: 100MG THREE TIMES PER DAY
     Dates: start: 20061212, end: 20061216

REACTIONS (1)
  - HEPATIC FUNCTION ABNORMAL [None]
